FAERS Safety Report 21423140 (Version 1)
Quarter: 2022Q4

REPORT INFORMATION
  Report Type: Spontaneous
  Country: US (occurrence: US)
  Receive Date: 20221007
  Receipt Date: 20221007
  Transmission Date: 20230113
  Serious: No
  Sender: FDA-Public Use
  Company Number: USA--2022-US-000694

PATIENT
  Age: 71 Year
  Sex: Male

DRUGS (2)
  1. LATANOPROST [Suspect]
     Active Substance: LATANOPROST
     Dosage: ONE DROP IN EACH EYE AT BEDTIME
     Dates: start: 202205
  2. LATANOPROST [Suspect]
     Active Substance: LATANOPROST

REACTIONS (1)
  - Vertigo [Unknown]

NARRATIVE: CASE EVENT DATE: 20220730
